FAERS Safety Report 15326595 (Version 1)
Quarter: 2018Q3

REPORT INFORMATION
  Report Type: Spontaneous
  Country: US (occurrence: US)
  Receive Date: 20180828
  Receipt Date: 20180828
  Transmission Date: 20181010
  Serious: Yes (Hospitalization)
  Sender: FDA-Public Use
  Company Number: US-TEVA-2018-US-947988

PATIENT
  Age: 38 Year
  Sex: Male

DRUGS (7)
  1. URSODIOL. [Concomitant]
     Active Substance: URSODIOL
     Dates: start: 201203
  2. DUONEB [Concomitant]
     Active Substance: ALBUTEROL SULFATE\IPRATROPIUM BROMIDE
  3. IMURAN [Suspect]
     Active Substance: AZATHIOPRINE
     Dosage: 100 MILLIGRAM DAILY;
     Route: 065
     Dates: start: 201609
  4. RITUXIMAB. [Suspect]
     Active Substance: RITUXIMAB
     Indication: RHEUMATOID ARTHRITIS
     Dates: start: 201205, end: 201711
  5. PROTONIX [Concomitant]
     Active Substance: PANTOPRAZOLE SODIUM
  6. AMLODIPINE [Concomitant]
     Active Substance: AMLODIPINE BESYLATE
  7. PREDNISONE. [Suspect]
     Active Substance: PREDNISONE
     Dosage: 10 MILLIGRAM DAILY;
     Route: 065
     Dates: start: 201203

REACTIONS (9)
  - Anaemia [Recovered/Resolved]
  - Confusional state [Unknown]
  - Parvovirus B19 infection [Recovered/Resolved]
  - Blood albumin decreased [Recovered/Resolved]
  - Cytopenia [Recovered/Resolved]
  - Hepatic enzyme increased [Recovered/Resolved]
  - Rash [Unknown]
  - Pruritus [Unknown]
  - Platelet count decreased [Unknown]

NARRATIVE: CASE EVENT DATE: 20170401
